FAERS Safety Report 9805878 (Version 1)
Quarter: 2014Q1

REPORT INFORMATION
  Report Type: Report from Study
  Country: US (occurrence: US)
  Receive Date: 20140109
  Receipt Date: 20140109
  Transmission Date: 20141002
  Serious: Yes (Hospitalization)
  Sender: FDA-Public Use
  Company Number: US-ABBVIE-14P-163-1186262-00

PATIENT
  Age: 62 Year
  Sex: Female

DRUGS (6)
  1. HUMIRA [Suspect]
     Indication: CROHN^S DISEASE
     Dates: start: 20131217
  2. METOPROLOL [Concomitant]
     Indication: HYPERTENSION
  3. ADVAIR [Concomitant]
     Indication: CHRONIC OBSTRUCTIVE PULMONARY DISEASE
  4. HUMALIN [Concomitant]
     Indication: DIABETES MELLITUS
     Dosage: 50 UNITS IN THE MORNING, 40 UNITS AT NIGHT
  5. ASPIRIN [Concomitant]
     Indication: PRODUCT USED FOR UNKNOWN INDICATION
  6. PREDNISONE [Concomitant]
     Indication: PRODUCT USED FOR UNKNOWN INDICATION
     Dates: end: 20131230

REACTIONS (3)
  - Atrial fibrillation [Not Recovered/Not Resolved]
  - Feeling abnormal [Unknown]
  - Blood magnesium decreased [Unknown]
